FAERS Safety Report 25461057 (Version 1)
Quarter: 2025Q2

REPORT INFORMATION
  Report Type: Spontaneous
  Country: US (occurrence: US)
  Receive Date: 20250620
  Receipt Date: 20250620
  Transmission Date: 20250717
  Serious: Yes (Other)
  Sender: PFIZER
  Company Number: US-PFIZER INC-202500123624

PATIENT

DRUGS (1)
  1. LORLATINIB [Suspect]
     Active Substance: LORLATINIB

REACTIONS (7)
  - Neuropathy peripheral [Unknown]
  - Hallucination [Unknown]
  - Anxiety [Unknown]
  - Blood cholesterol increased [Unknown]
  - Gastrointestinal disorder [Unknown]
  - Oedema [Unknown]
  - Sciatica [Unknown]
